FAERS Safety Report 7891794-1 (Version None)
Quarter: 2011Q4

REPORT INFORMATION
  Report Type: 
  Country: None (occurrence: None)
  Receive Date: 20111103
  Receipt Date: 20110810
  Transmission Date: 20120403
  Serious: No
  Sender: FDA-Public Use
  Company Number: US-AMGEN-USASP2011040684

PATIENT
  Age: 44 Year
  Sex: Male

DRUGS (1)
  1. ENBREL [Suspect]
     Indication: PSORIATIC ARTHROPATHY
     Dosage: 50 MG, QWK
     Dates: start: 20101206

REACTIONS (6)
  - SINUS DISORDER [None]
  - INJECTION SITE URTICARIA [None]
  - INJECTION SITE SWELLING [None]
  - PSORIASIS [None]
  - INJECTION SITE WARMTH [None]
  - CHEST PAIN [None]
